FAERS Safety Report 20429449 (Version 1)
Quarter: 2022Q1

REPORT INFORMATION
  Report Type: Spontaneous
  Country: US (occurrence: None)
  Receive Date: 20220203
  Receipt Date: 20220203
  Transmission Date: 20220423
  Serious: No
  Sender: FDA-Public Use
  Company Number: None

PATIENT
  Age: 66 Year
  Sex: Female
  Weight: 89.1 kg

DRUGS (1)
  1. PAXLOVID [Suspect]
     Active Substance: NIRMATRELVIR\RITONAVIR
     Indication: Coronavirus test positive
     Dosage: OTHER QUANTITY : 6 TABLET(S);?FREQUENCY : TWICE A DAY;?
     Route: 048
     Dates: start: 20220202, end: 20220203

REACTIONS (4)
  - Dyspnoea [None]
  - Dizziness [None]
  - Product after taste [None]
  - Heart rate increased [None]

NARRATIVE: CASE EVENT DATE: 20220203
